FAERS Safety Report 22142490 (Version 1)
Quarter: 2023Q1

REPORT INFORMATION
  Report Type: Report from Study
  Country: PH (occurrence: PH)
  Receive Date: 20230327
  Receipt Date: 20230327
  Transmission Date: 20230418
  Serious: Yes (Hospitalization)
  Sender: FDA-Public Use
  Company Number: PH-002147023-NVSC2023PH066911

PATIENT
  Age: 46 Year
  Sex: Male

DRUGS (1)
  1. ENTRESTO [Suspect]
     Active Substance: SACUBITRIL\VALSARTAN
     Indication: Product used for unknown indication
     Dosage: 100 MG, QD (100 MG 1/2 TAB TWICE DAILY)
     Route: 048

REACTIONS (2)
  - Cerebrovascular accident [Unknown]
  - Wrong technique in product usage process [Unknown]
